FAERS Safety Report 18330382 (Version 1)
Quarter: 2020Q3

REPORT INFORMATION
  Report Type: Report from Study
  Country: US (occurrence: US)
  Receive Date: 20200930
  Receipt Date: 20200930
  Transmission Date: 20201103
  Serious: Yes (Hospitalization)
  Sender: FDA-Public Use
  Company Number: US-BAYER-2020-207736

PATIENT
  Age: 57 Year
  Sex: Female
  Weight: 76.19 kg

DRUGS (3)
  1. ADEMPAS [Suspect]
     Active Substance: RIOCIGUAT
     Indication: PULMONARY ARTERIAL HYPERTENSION
     Dosage: 0.5 MG, TID
     Route: 048
     Dates: start: 20200917
  2. VELETRI [Concomitant]
     Active Substance: EPOPROSTENOL
     Dosage: UNK
  3. OPSUMIT [Concomitant]
     Active Substance: MACITENTAN
     Dosage: UNK

REACTIONS (8)
  - Pain in jaw [None]
  - Hospitalisation [None]
  - Diarrhoea [None]
  - Headache [None]
  - Vomiting [None]
  - Nausea [None]
  - Heart rate decreased [Not Recovered/Not Resolved]
  - Oxygen saturation decreased [None]

NARRATIVE: CASE EVENT DATE: 2020
